FAERS Safety Report 10688624 (Version 1)
Quarter: 2015Q1

REPORT INFORMATION
  Report Type: Spontaneous
  Country: SE (occurrence: SE)
  Receive Date: 20150102
  Receipt Date: 20150102
  Transmission Date: 20150720
  Serious: Yes (Life-Threatening, Hospitalization)
  Sender: FDA-Public Use
  Company Number: SE-ASTRAZENECA-2015SE00234

PATIENT
  Age: 42 Year
  Sex: Male

DRUGS (7)
  1. TENORMIN [Suspect]
     Active Substance: ATENOLOL
     Dosage: 40 TABLETS X 50 MG AT ONE OCCASION SINGLE, 2 G
     Route: 048
     Dates: start: 20131110, end: 20131110
  2. TRAMADOL [Suspect]
     Active Substance: TRAMADOL
     Dosage: 10 TABLETS OF UNKNOWN STRENGTH AT ONE OCCASION SINGLE DOSE
     Route: 048
     Dates: start: 20131110, end: 20131110
  3. ENALAPRIL [Concomitant]
     Active Substance: ENALAPRIL
  4. PANODIL [Suspect]
     Active Substance: ACETAMINOPHEN
     Dosage: 500 MG X 10 TABLETS AT ONE OCCASION
     Route: 048
     Dates: start: 20131110, end: 20131110
  5. STESOLID [Suspect]
     Active Substance: DIAZEPAM
     Dosage: 10 TABLETS X 10 MG AT ONE OCCASION SINGLE.
     Route: 048
     Dates: start: 20131110, end: 20131110
  6. OMEPRAZOLE. [Concomitant]
     Active Substance: OMEPRAZOLE
  7. CAMPRAL [Concomitant]
     Active Substance: ACAMPROSATE CALCIUM

REACTIONS (3)
  - Toxicity to various agents [Unknown]
  - Suicidal ideation [Unknown]
  - Intentional overdose [Unknown]
